FAERS Safety Report 24985111 (Version 1)
Quarter: 2025Q1

REPORT INFORMATION
  Report Type: Spontaneous
  Country: US (occurrence: US)
  Receive Date: 20250219
  Receipt Date: 20250219
  Transmission Date: 20250408
  Serious: No
  Sender: BAUSCH AND LOMB
  Company Number: US-BAUSCHBL-2024BNL039722

PATIENT
  Age: 81 Year
  Sex: Female

DRUGS (2)
  1. LOTEMAX [Suspect]
     Active Substance: LOTEPREDNOL ETABONATE
     Indication: Blepharospasm
     Dosage: TWICE A DAY
     Route: 065
     Dates: start: 2025
  2. LOTEMAX [Suspect]
     Active Substance: LOTEPREDNOL ETABONATE
     Indication: Product use in unapproved indication

REACTIONS (5)
  - Visual impairment [Not Recovered/Not Resolved]
  - Product closure removal difficult [Unknown]
  - Product dose omission in error [Unknown]
  - Product quality issue [Unknown]
  - Product use in unapproved indication [Unknown]
